FAERS Safety Report 20617038 (Version 2)
Quarter: 2022Q4

REPORT INFORMATION
  Report Type: Spontaneous
  Country: US (occurrence: US)
  Receive Date: 20220321
  Receipt Date: 20221012
  Transmission Date: 20230113
  Serious: Yes (Hospitalization)
  Sender: FDA-Public Use
  Company Number: US-SA-SAC20220321000099

PATIENT
  Sex: Female

DRUGS (10)
  1. DUPIXENT [Suspect]
     Active Substance: DUPILUMAB
     Indication: Asthma
     Dosage: 300 MG, QOW
     Route: 058
     Dates: start: 202104
  2. DUPIXENT [Suspect]
     Active Substance: DUPILUMAB
     Dosage: 300 MG, QOW
     Route: 058
     Dates: start: 202202
  3. SIROLIMUS [Concomitant]
     Active Substance: SIROLIMUS
     Indication: Immunodeficiency
  4. SIROLIMUS [Concomitant]
     Active Substance: SIROLIMUS
     Indication: Primary biliary cholangitis
  5. SIROLIMUS [Concomitant]
     Active Substance: SIROLIMUS
     Indication: Systemic lupus erythematosus
  6. SIROLIMUS [Concomitant]
     Active Substance: SIROLIMUS
     Indication: Asthma
  7. GAMUNEX [Concomitant]
     Active Substance: HUMAN IMMUNOGLOBULIN G
     Indication: Asthma
  8. GAMUNEX [Concomitant]
     Active Substance: HUMAN IMMUNOGLOBULIN G
     Indication: Systemic lupus erythematosus
  9. GAMUNEX [Concomitant]
     Active Substance: HUMAN IMMUNOGLOBULIN G
     Indication: Primary biliary cholangitis
  10. GAMUNEX [Concomitant]
     Active Substance: HUMAN IMMUNOGLOBULIN G
     Indication: Immunodeficiency

REACTIONS (2)
  - Hospitalisation [Unknown]
  - Malaise [Unknown]
